FAERS Safety Report 15268221 (Version 1)
Quarter: 2018Q3

REPORT INFORMATION
  Report Type: Report from Study
  Country: FR (occurrence: FR)
  Receive Date: 20180812
  Receipt Date: 20180812
  Transmission Date: 20181010
  Serious: Yes (Other)
  Sender: FDA-Public Use
  Company Number: FR-TEVA-2018-FR-938793

PATIENT
  Age: 74 Year
  Sex: Female
  Weight: 50 kg

DRUGS (6)
  1. ACUPAN [Concomitant]
     Active Substance: NEFOPAM HYDROCHLORIDE
     Route: 065
     Dates: start: 20170907
  2. 5?FU [Suspect]
     Active Substance: FLUOROURACIL
     Indication: COLORECTAL CANCER METASTATIC
     Dosage: 4200 MILLIGRAM, 1 CYCLICAL
     Route: 065
     Dates: start: 20170807
  3. AERIUS [Concomitant]
     Active Substance: DESLORATADINE
     Route: 065
     Dates: start: 20171005
  4. BEVACIZUMAB. [Suspect]
     Active Substance: BEVACIZUMAB
     Indication: COLORECTAL CANCER METASTATIC
     Dosage: 250 MILLIGRAM, 1 CYCLICAL
     Route: 065
     Dates: start: 20170807
  5. OXALIPLATINE [Suspect]
     Active Substance: OXALIPLATIN
     Indication: COLORECTAL CANCER METASTATIC
     Dosage: 275 MILLIGRAM, 1 CYCLICAL
     Route: 065
     Dates: start: 20170807, end: 20171019
  6. FOLINIC ACID [Suspect]
     Active Substance: LEUCOVORIN
     Indication: COLORECTAL CANCER METASTATIC
     Dosage: 590 MILLIGRAM, 1 CYCLICAL
     Route: 065
     Dates: start: 20170807

REACTIONS (1)
  - Hypertension [Recovered/Resolved]

NARRATIVE: CASE EVENT DATE: 20171116
